FAERS Safety Report 5659973-1 (Version None)
Quarter: 2008Q1

REPORT INFORMATION
  Report Type: 
  Country: None (occurrence: None)
  Receive Date: 20080311
  Receipt Date: 20080206
  Transmission Date: 20080703
  Serious: Yes (Other)
  Sender: FDA-Public Use
  Company Number: US-BAYER-200712678BCC

PATIENT
  Age: 87 Year
  Sex: Female
  Weight: 58 kg

DRUGS (12)
  1. ALEVE [Suspect]
     Indication: ARTHRALGIA
     Dosage: AS USED: 440 MG  UNIT DOSE: 220 MG
     Route: 048
     Dates: start: 20070810
  2. METHOTREXATE [Suspect]
     Route: 065
  3. NORVASC [Concomitant]
  4. ENALAPRIL MALEATE [Concomitant]
  5. METHOTREXAT [Concomitant]
  6. FOLIC ACID [Concomitant]
  7. HYDROCHLOROTHIAZIDE [Concomitant]
  8. FOSAMAX [Concomitant]
  9. MULTI-VITAMIN [Concomitant]
  10. ASPIRIN [Concomitant]
  11. VITAMIN E 400 [Concomitant]
  12. VIACTIV [Concomitant]

REACTIONS (1)
  - FAECES DISCOLOURED [None]
